FAERS Safety Report 23309180 (Version 2)
Quarter: 2024Q1

REPORT INFORMATION
  Report Type: Spontaneous
  Country: US (occurrence: US)
  Receive Date: 20231218
  Receipt Date: 20240101
  Transmission Date: 20240410
  Serious: Yes (Death, Other)
  Sender: FDA-Public Use
  Company Number: US-BRISTOL-MYERS SQUIBB COMPANY-2023-182860

PATIENT
  Age: 73 Year
  Sex: Male
  Weight: 87.09 kg

DRUGS (2)
  1. POMALYST [Suspect]
     Active Substance: POMALIDOMIDE
     Indication: Plasma cell myeloma
     Dates: start: 20221118
  2. POMALYST [Suspect]
     Active Substance: POMALIDOMIDE
     Dosage: 3WKSON/1WKOFF (3WEEKS ON/ 1 WEEK OFF)
     Route: 048
     Dates: start: 20230101, end: 20231215

REACTIONS (1)
  - Death [Fatal]

NARRATIVE: CASE EVENT DATE: 20231215
